FAERS Safety Report 24075621 (Version 2)
Quarter: 2024Q3

REPORT INFORMATION
  Report Type: Report from Study
  Country: US (occurrence: US)
  Receive Date: 20240710
  Receipt Date: 20240808
  Transmission Date: 20241016
  Serious: No
  Sender: ALEXION PHARMACEUTICALS
  Company Number: US-AstraZeneca-CH-00659593A

PATIENT
  Age: 10 Year
  Sex: Male

DRUGS (1)
  1. STRENSIQ [Suspect]
     Active Substance: ASFOTASE ALFA
     Indication: Hypophosphatasia
     Dosage: UNK
     Route: 065
     Dates: start: 20210524

REACTIONS (4)
  - Injection site swelling [Unknown]
  - Injection site irritation [Unknown]
  - Eosinophilic oesophagitis [Unknown]
  - Pain [Unknown]

NARRATIVE: CASE EVENT DATE: 20231201
